FAERS Safety Report 7113387-6 (Version None)
Quarter: 2010Q4

REPORT INFORMATION
  Report Type: 
  Country: None (occurrence: None)
  Receive Date: 20101119
  Receipt Date: 20101109
  Transmission Date: 20110411
  Serious: Yes (Hospitalization)
  Sender: FDA-Public Use
  Company Number: JP-GENENTECH-308063

PATIENT
  Sex: Female

DRUGS (20)
  1. OMALIZUMAB [Suspect]
     Indication: ASTHMA
     Dosage: 300 MG, Q2W
     Route: 058
     Dates: start: 20100203
  2. OMALIZUMAB [Suspect]
     Dosage: UNK
     Dates: start: 20100217
  3. OMALIZUMAB [Suspect]
     Dosage: UNK
     Dates: start: 20100303
  4. OMALIZUMAB [Suspect]
     Dosage: UNK
     Dates: start: 20100317
  5. OMALIZUMAB [Suspect]
     Dosage: UNK
     Dates: start: 20100331
  6. OMALIZUMAB [Suspect]
     Dosage: UNK
     Dates: start: 20100414
  7. OMALIZUMAB [Suspect]
     Dosage: UNK
     Dates: start: 20100428
  8. OMALIZUMAB [Suspect]
     Dosage: UNK
     Dates: start: 20100512
  9. OMALIZUMAB [Suspect]
     Dosage: UNK
     Dates: start: 20100526
  10. ADVAIR DISKUS 100/50 [Concomitant]
     Indication: PRODUCT USED FOR UNKNOWN INDICATION
     Dosage: UNK
     Dates: start: 20091014
  11. SPIROPENT [Concomitant]
     Indication: PRODUCT USED FOR UNKNOWN INDICATION
  12. ONON [Concomitant]
     Indication: PRODUCT USED FOR UNKNOWN INDICATION
     Dosage: UNK
     Dates: start: 20091014, end: 20100511
  13. IPD [Concomitant]
     Indication: PRODUCT USED FOR UNKNOWN INDICATION
     Dosage: UNK
     Dates: start: 20091014
  14. INTAL [Concomitant]
     Indication: PRODUCT USED FOR UNKNOWN INDICATION
     Dosage: UNK
     Dates: start: 20091014, end: 20100212
  15. SINGULAIR [Concomitant]
     Indication: PRODUCT USED FOR UNKNOWN INDICATION
     Dosage: UNK
     Dates: start: 20100512
  16. THEOLONG [Concomitant]
     Indication: PRODUCT USED FOR UNKNOWN INDICATION
     Dosage: UNK
     Dates: start: 20091014
  17. MEPTIN [Concomitant]
     Indication: PRODUCT USED FOR UNKNOWN INDICATION
     Dosage: UNK
     Dates: start: 20091014
  18. AZELASTINE HCL [Concomitant]
     Indication: PRODUCT USED FOR UNKNOWN INDICATION
     Dosage: UNK
     Dates: start: 20100203
  19. MICARDIS [Concomitant]
     Indication: PRODUCT USED FOR UNKNOWN INDICATION
     Dosage: UNK
     Dates: start: 20100203
  20. OMEPRAL [Concomitant]
     Indication: PRODUCT USED FOR UNKNOWN INDICATION
     Dosage: UNK
     Dates: start: 20100203

REACTIONS (2)
  - ASTHMA [None]
  - GASTROENTERITIS NOROVIRUS [None]
